FAERS Safety Report 23175639 (Version 2)
Quarter: 2023Q4

REPORT INFORMATION
  Report Type: Other
  Country: GB (occurrence: None)
  Receive Date: 20231113
  Receipt Date: 20231213
  Transmission Date: 20240109
  Serious: Yes (Hospitalization)
  Sender: FDA-Public Use
  Company Number: GB-ROCHE-3432416

PATIENT
  Sex: Female

DRUGS (1)
  1. TOCILIZUMAB [Suspect]
     Active Substance: TOCILIZUMAB
     Indication: Rheumatoid arthritis
     Route: 058
     Dates: start: 202302

REACTIONS (2)
  - Lower respiratory tract infection [Recovered/Resolved]
  - Scleritis [Recovering/Resolving]
